FAERS Safety Report 19502346 (Version 2)
Quarter: 2021Q4

REPORT INFORMATION
  Report Type: Spontaneous
  Country: US (occurrence: US)
  Receive Date: 20210707
  Receipt Date: 20211109
  Transmission Date: 20220303
  Serious: Yes (Other)
  Sender: FDA-Public Use
  Company Number: US-GSKCCFUS-CASE-01100385_AE-64914

PATIENT
  Sex: Female

DRUGS (1)
  1. LAMICTAL [Suspect]
     Active Substance: LAMOTRIGINE
     Indication: Product used for unknown indication
     Dosage: UNK

REACTIONS (8)
  - Staphylococcal infection [Unknown]
  - Scar [Not Recovered/Not Resolved]
  - Rash [Unknown]
  - Skin ulcer [Unknown]
  - Adverse drug reaction [Unknown]
  - Furuncle [Unknown]
  - Eyelid disorder [Unknown]
  - Scratch [Unknown]
